FAERS Safety Report 10349732 (Version 2)
Quarter: 2014Q3

REPORT INFORMATION
  Report Type: Spontaneous
  Country: BR (occurrence: BR)
  Receive Date: 20140730
  Receipt Date: 20140809
  Transmission Date: 20150326
  Serious: Yes (Other)
  Sender: FDA-Public Use
  Company Number: PHHY2014BR091726

PATIENT
  Age: 81 Year
  Sex: Female

DRUGS (2)
  1. SELOZOK [Suspect]
     Active Substance: METOPROLOL SUCCINATE
     Dosage: 50 MG, DAILY
  2. VISKALDIX / VISKALDIX MITE [Suspect]
     Active Substance: CLOPAMIDE\PINDOLOL
     Indication: HYPERTENSION
     Dosage: 2 DF, DAILY
     Route: 048

REACTIONS (2)
  - Blood pressure increased [Recovered/Resolved]
  - Blood pressure inadequately controlled [Unknown]

NARRATIVE: CASE EVENT DATE: 20140722
